FAERS Safety Report 8582056-8 (Version None)
Quarter: 2012Q3

REPORT INFORMATION
  Report Type: 
  Country: None (occurrence: None)
  Receive Date: 20120809
  Receipt Date: 20120806
  Transmission Date: 20120928
  Serious: Yes (Hospitalization, Other)
  Sender: FDA-Public Use
  Company Number: FR-PFIZER INC-2012175483

PATIENT
  Age: 59 Year
  Sex: Female
  Weight: 67 kg

DRUGS (5)
  1. SOLU-MEDROL [Suspect]
     Indication: ANAPHYLACTIC SHOCK
     Dosage: UNK
  2. CELEBREX [Suspect]
     Indication: BACK PAIN
     Dosage: 200 MG, 1X/DAY
     Dates: start: 20120718
  3. ASPIRIN [Concomitant]
     Indication: HYPERTENSION
     Dosage: ONCE DAILY
     Route: 048
     Dates: start: 20110401
  4. FOSINOPRIL SODIUM AND HYDROCHLOROTHIAZIDE [Concomitant]
     Indication: HYPERTENSION
     Dosage: ONCE DAILY
     Route: 048
     Dates: start: 20110401
  5. AZINC [Concomitant]
     Indication: MINERAL SUPPLEMENTATION
     Dosage: TWICE DAILY
     Route: 048
     Dates: start: 20120717, end: 20120718

REACTIONS (3)
  - NAUSEA [None]
  - ANAPHYLACTIC SHOCK [None]
  - DIZZINESS [None]
